FAERS Safety Report 5146970-8 (Version None)
Quarter: 2006Q4

REPORT INFORMATION
  Report Type: 
  Country: None (occurrence: None)
  Receive Date: 20061109
  Receipt Date: 20060804
  Transmission Date: 20070319
  Serious: Yes (Other)
  Sender: FDA-Public Use
  Company Number: US-ROCHE-458674

PATIENT
  Age: 24 Year
  Sex: Male
  Weight: 81.6 kg

DRUGS (3)
  1. ACCUTANE [Suspect]
     Indication: ACNE
     Route: 048
     Dates: start: 19891215
  2. ACCUTANE [Suspect]
     Route: 048
     Dates: start: 19910115, end: 19910415
  3. ACCUTANE [Suspect]
     Route: 048
     Dates: start: 19920215, end: 19920215

REACTIONS (3)
  - AUTOIMMUNE HEPATITIS [None]
  - CHRONIC HEPATIC FAILURE [None]
  - HEPATOCELLULAR DAMAGE [None]
